FAERS Safety Report 8707646 (Version 3)
Quarter: 2013Q2

REPORT INFORMATION
  Report Type: Spontaneous
  Country: HU (occurrence: HU)
  Receive Date: 20120806
  Receipt Date: 20130611
  Transmission Date: 20140414
  Serious: Yes (Death, Life-Threatening, Hospitalization, Other)
  Sender: FDA-Public Use
  Company Number: HU-AMGEN-HUNSP2012047987

PATIENT
  Age: 68 Year
  Sex: Male

DRUGS (3)
  1. NPLATE [Suspect]
     Indication: IDIOPATHIC THROMBOCYTOPENIC PURPURA
     Dosage: 7 MUG/KG, UNK
     Dates: start: 200909
  2. NPLATE [Suspect]
  3. MEDROL                             /00049601/ [Concomitant]
     Dosage: 8 MG, QD

REACTIONS (10)
  - Cerebral haemorrhage [Fatal]
  - Therapeutic response decreased [Unknown]
  - Platelet count decreased [Unknown]
  - Gastrointestinal haemorrhage [Unknown]
  - Myelofibrosis [Unknown]
  - Vasculitis [Unknown]
  - Platelet dysfunction [Unknown]
  - Mouth haemorrhage [Unknown]
  - Herpes virus infection [Unknown]
  - Skin haemorrhage [Unknown]
